FAERS Safety Report 24767937 (Version 1)
Quarter: 2024Q4

REPORT INFORMATION
  Report Type: Spontaneous
  Country: PT (occurrence: PT)
  Receive Date: 20241223
  Receipt Date: 20241223
  Transmission Date: 20250115
  Serious: Yes (Hospitalization)
  Sender: TEVA
  Company Number: None

PATIENT
  Age: 42 Year
  Sex: Female
  Weight: 55 kg

DRUGS (2)
  1. AJOVY [Suspect]
     Active Substance: FREMANEZUMAB-VFRM
     Indication: Migraine
     Dosage: 1 SC INJECTION MONTHLY
     Route: 058
     Dates: start: 20240102, end: 20241204
  2. ZENTEL [Suspect]
     Active Substance: ALBENDAZOLE
     Indication: Prophylaxis
     Dosage: TOOK AFTER 4-5 DAYS OF THE 3RD DOSE OF AJOVY AND THE 2ND DOSE OF ZENTEL 1 WEEK LATER
     Route: 065
     Dates: start: 20240401, end: 20240408

REACTIONS (1)
  - Hepatitis toxic [Recovered/Resolved]

NARRATIVE: CASE EVENT DATE: 20240408
